FAERS Safety Report 9548658 (Version 1)
Quarter: 2013Q2

REPORT INFORMATION
  Report Type: Spontaneous
  Country: US (occurrence: None)
  Receive Date: 20130606
  Receipt Date: 20130606
  Transmission Date: 20140414
  Serious: Yes (Other)
  Sender: FDA-Public Use
  Company Number: 1303USA012899

PATIENT
  Age: 60 Year
  Sex: Female

DRUGS (3)
  1. ZIOPTAN [Suspect]
     Indication: GLAUCOMA
  2. SYNTHROID (LEVOTHYROXINE SODIUM) [Concomitant]
  3. ACIPHEX (RABEPRAZOLE SODIUM) [Concomitant]

REACTIONS (1)
  - Arthralgia [None]
